FAERS Safety Report 24962683 (Version 1)
Quarter: 2025Q1

REPORT INFORMATION
  Report Type: Spontaneous
  Country: JP (occurrence: JP)
  Receive Date: 20250212
  Receipt Date: 20250212
  Transmission Date: 20250409
  Serious: Yes (Hospitalization)
  Sender: TAKEDA
  Company Number: JP-TAKEDA-2025TJP001526

PATIENT
  Age: 61 Year
  Sex: Female

DRUGS (8)
  1. FRUZAQLA [Suspect]
     Active Substance: FRUQUINTINIB
     Indication: Rectal cancer
     Dosage: 5 MILLIGRAM, QD
     Dates: start: 20241216, end: 20250105
  2. MAGNESIUM OXIDE [Concomitant]
     Active Substance: MAGNESIUM OXIDE
  3. RABEPRAZOLE SODIUM [Concomitant]
     Active Substance: RABEPRAZOLE SODIUM
  4. ELIQUIS [Concomitant]
     Active Substance: APIXABAN
  5. ELOBIXIBAT [Concomitant]
     Active Substance: ELOBIXIBAT
  6. AMLODIPINE [Concomitant]
     Active Substance: AMLODIPINE BESYLATE
  7. LOXOPROFEN [Concomitant]
     Active Substance: LOXOPROFEN
  8. ACETAMINOPHEN [Concomitant]
     Active Substance: ACETAMINOPHEN

REACTIONS (1)
  - Nephrotic syndrome [Recovered/Resolved]

NARRATIVE: CASE EVENT DATE: 20250106
